FAERS Safety Report 4444887-5 (Version None)
Quarter: 2004Q3

REPORT INFORMATION
  Report Type: 
  Country: None (occurrence: None)
  Receive Date: 20040909
  Receipt Date: 20040618
  Transmission Date: 20050211
  Serious: Yes (Death)
  Sender: FDA-Public Use
  Company Number: JP-GLAXOSMITHKLINE-B0336490A

PATIENT
  Age: 54 Year
  Sex: Male
  Weight: 66 kg

DRUGS (3)
  1. ZEFIX [Suspect]
     Indication: HEPATIC CIRRHOSIS
     Dosage: 100MG PER DAY
     Route: 048
     Dates: start: 20010316
  2. URSODEOXYCHOLIC ACID [Concomitant]
     Indication: CHRONIC HEPATITIS
     Dosage: 600MG PER DAY
     Route: 048
     Dates: start: 20000516
  3. SPIRONOLACTONE [Concomitant]
     Indication: OEDEMA
     Dosage: 25MG PER DAY
     Route: 048
     Dates: start: 20000516

REACTIONS (7)
  - ALANINE AMINOTRANSFERASE INCREASED [None]
  - ASPARTATE AMINOTRANSFERASE INCREASED [None]
  - BLOOD BILIRUBIN INCREASED [None]
  - CONDITION AGGRAVATED [None]
  - LIVER DISORDER [None]
  - PATHOGEN RESISTANCE [None]
  - VIRAL INFECTION [None]
